FAERS Safety Report 5787112-5 (Version None)
Quarter: 2008Q2

REPORT INFORMATION
  Report Type: 
  Country: None (occurrence: None)
  Receive Date: 20080623
  Receipt Date: 20080623
  Transmission Date: 20081010
  Serious: Yes (Hospitalization)
  Sender: FDA-Public Use
  Company Number: None

PATIENT
  Age: 74 Year
  Sex: Male
  Weight: 67 kg

DRUGS (1)
  1. TERAZOSIN HCL [Suspect]
     Indication: URINARY RETENTION
     Dosage: 6 MG AT BEDTIME PO ONCE
     Route: 048

REACTIONS (5)
  - BRADYCARDIA [None]
  - CONFUSIONAL STATE [None]
  - HYPOTENSION [None]
  - OVERDOSE [None]
  - PALLOR [None]
